FAERS Safety Report 19955561 (Version 4)
Quarter: 2022Q1

REPORT INFORMATION
  Report Type: Report from Study
  Country: DE (occurrence: DE)
  Receive Date: 20211014
  Receipt Date: 20220311
  Transmission Date: 20220423
  Serious: Yes (Hospitalization, Other)
  Sender: FDA-Public Use
  Company Number: DE-TAKEDA-2021TUS062695

PATIENT
  Age: 33 Year
  Sex: Female

DRUGS (43)
  1. TEDUGLUTIDE [Suspect]
     Active Substance: TEDUGLUTIDE
     Indication: Short-bowel syndrome
     Dosage: 2.2 MILLIGRAM, QD
     Route: 065
     Dates: start: 20200511, end: 202102
  2. TEDUGLUTIDE [Suspect]
     Active Substance: TEDUGLUTIDE
     Indication: Short-bowel syndrome
     Dosage: 2.2 MILLIGRAM, QD
     Route: 065
     Dates: start: 20200511, end: 202102
  3. TEDUGLUTIDE [Suspect]
     Active Substance: TEDUGLUTIDE
     Indication: Short-bowel syndrome
     Dosage: 2.2 MILLIGRAM, QD
     Route: 065
     Dates: start: 20200511, end: 202102
  4. TEDUGLUTIDE [Suspect]
     Active Substance: TEDUGLUTIDE
     Indication: Short-bowel syndrome
     Dosage: 2.2 MILLIGRAM, QD
     Route: 065
     Dates: start: 20200511, end: 202102
  5. TEDUGLUTIDE [Suspect]
     Active Substance: TEDUGLUTIDE
     Dosage: 3 MILLIGRAM, QD
     Route: 065
     Dates: start: 202102
  6. TEDUGLUTIDE [Suspect]
     Active Substance: TEDUGLUTIDE
     Dosage: 3 MILLIGRAM, QD
     Route: 065
     Dates: start: 202102
  7. TEDUGLUTIDE [Suspect]
     Active Substance: TEDUGLUTIDE
     Dosage: 3 MILLIGRAM, QD
     Route: 065
     Dates: start: 202102
  8. TEDUGLUTIDE [Suspect]
     Active Substance: TEDUGLUTIDE
     Dosage: 3 MILLIGRAM, QD
     Route: 065
     Dates: start: 202102
  9. TEDUGLUTIDE [Suspect]
     Active Substance: TEDUGLUTIDE
     Dosage: 3.2 MILLIGRAM, QD
     Route: 065
     Dates: start: 20200511, end: 202102
  10. TEDUGLUTIDE [Suspect]
     Active Substance: TEDUGLUTIDE
     Dosage: 3.2 MILLIGRAM, QD
     Route: 065
     Dates: start: 20200511, end: 202102
  11. TEDUGLUTIDE [Suspect]
     Active Substance: TEDUGLUTIDE
     Dosage: 3.2 MILLIGRAM, QD
     Route: 065
     Dates: start: 20200511, end: 202102
  12. TEDUGLUTIDE [Suspect]
     Active Substance: TEDUGLUTIDE
     Dosage: 3.2 MILLIGRAM, QD
     Route: 065
     Dates: start: 20200511, end: 202102
  13. TEDUGLUTIDE [Suspect]
     Active Substance: TEDUGLUTIDE
     Dosage: 3 MILLIGRAM, QD
     Route: 065
     Dates: start: 202102, end: 202105
  14. TEDUGLUTIDE [Suspect]
     Active Substance: TEDUGLUTIDE
     Dosage: 3 MILLIGRAM, QD
     Route: 065
     Dates: start: 202102, end: 202105
  15. TEDUGLUTIDE [Suspect]
     Active Substance: TEDUGLUTIDE
     Dosage: 3 MILLIGRAM, QD
     Route: 065
     Dates: start: 202102, end: 202105
  16. TEDUGLUTIDE [Suspect]
     Active Substance: TEDUGLUTIDE
     Dosage: 3 MILLIGRAM, QD
     Route: 065
     Dates: start: 202102, end: 202105
  17. TEDUGLUTIDE [Suspect]
     Active Substance: TEDUGLUTIDE
     Dosage: 2.8 MILLIGRAM, QD
     Route: 065
     Dates: start: 202105, end: 202111
  18. TEDUGLUTIDE [Suspect]
     Active Substance: TEDUGLUTIDE
     Dosage: 2.8 MILLIGRAM, QD
     Route: 065
     Dates: start: 202105, end: 202111
  19. TEDUGLUTIDE [Suspect]
     Active Substance: TEDUGLUTIDE
     Dosage: 2.8 MILLIGRAM, QD
     Route: 065
     Dates: start: 202105, end: 202111
  20. TEDUGLUTIDE [Suspect]
     Active Substance: TEDUGLUTIDE
     Dosage: 2.8 MILLIGRAM, QD
     Route: 065
     Dates: start: 202105, end: 202111
  21. TEDUGLUTIDE [Suspect]
     Active Substance: TEDUGLUTIDE
     Dosage: 2.6 MILLIGRAM, QD
     Route: 065
     Dates: start: 202111
  22. TEDUGLUTIDE [Suspect]
     Active Substance: TEDUGLUTIDE
     Dosage: 2.6 MILLIGRAM, QD
     Route: 065
     Dates: start: 202111
  23. TEDUGLUTIDE [Suspect]
     Active Substance: TEDUGLUTIDE
     Dosage: 2.6 MILLIGRAM, QD
     Route: 065
     Dates: start: 202111
  24. TEDUGLUTIDE [Suspect]
     Active Substance: TEDUGLUTIDE
     Dosage: 2.6 MILLIGRAM, QD
     Route: 065
     Dates: start: 202111
  25. TEDUGLUTIDE [Suspect]
     Active Substance: TEDUGLUTIDE
     Dosage: 2.6 MILLIGRAM, QD
     Route: 065
     Dates: start: 20200513, end: 202110
  26. TEDUGLUTIDE [Suspect]
     Active Substance: TEDUGLUTIDE
     Dosage: 2.6 MILLIGRAM, QD
     Route: 065
     Dates: start: 20200513, end: 202110
  27. TEDUGLUTIDE [Suspect]
     Active Substance: TEDUGLUTIDE
     Dosage: 2.6 MILLIGRAM, QD
     Route: 065
     Dates: start: 20200513, end: 202110
  28. TEDUGLUTIDE [Suspect]
     Active Substance: TEDUGLUTIDE
     Dosage: 2.6 MILLIGRAM, QD
     Route: 065
     Dates: start: 20200513, end: 202110
  29. TEDUGLUTIDE [Suspect]
     Active Substance: TEDUGLUTIDE
     Dosage: 2.6 MILLIGRAM, QD
     Route: 065
     Dates: start: 20200513, end: 202110
  30. TEDUGLUTIDE [Suspect]
     Active Substance: TEDUGLUTIDE
     Dosage: 2.6 MILLIGRAM, QD
     Route: 065
     Dates: start: 20200513, end: 202110
  31. TEDUGLUTIDE [Suspect]
     Active Substance: TEDUGLUTIDE
     Dosage: 2.6 MILLIGRAM, QD
     Route: 065
     Dates: start: 20200513, end: 202110
  32. TEDUGLUTIDE [Suspect]
     Active Substance: TEDUGLUTIDE
     Dosage: 2.6 MILLIGRAM, QD
     Route: 065
     Dates: start: 20200513, end: 202110
  33. MORPHINE SULFATE [Concomitant]
     Active Substance: MORPHINE SULFATE
     Indication: Pain
     Dosage: 10 MILLIGRAM, PRN
     Route: 030
  34. MEPERIDINE [Concomitant]
     Active Substance: MEPERIDINE
     Indication: Pain
     Dosage: 100 MILLIGRAM, PRN
     Route: 030
  35. METAMIZOLE [Concomitant]
     Active Substance: METAMIZOLE
     Indication: Short-bowel syndrome
     Dosage: 1 UNK, PRN
     Route: 048
  36. METAMIZOLE [Concomitant]
     Active Substance: METAMIZOLE
     Indication: Pain
  37. VITAMIN B12 [Concomitant]
     Active Substance: CYANOCOBALAMIN
     Indication: Short-bowel syndrome
     Dosage: 1 UNK, MONTHLY
     Route: 030
     Dates: start: 2017
  38. PROGESTERONE [Concomitant]
     Active Substance: PROGESTERONE
     Indication: Product use in unapproved indication
     Dosage: 1 GRAM, QD
     Route: 048
     Dates: start: 202110
  39. IMODIUM [Concomitant]
     Active Substance: LOPERAMIDE HYDROCHLORIDE
     Indication: Short-bowel syndrome
  40. Mucofalk [Concomitant]
     Indication: Short-bowel syndrome
     Dosage: 5 GRAM, TID
     Route: 048
     Dates: start: 20211103
  41. PANTOZOL [Concomitant]
     Active Substance: PANTOPRAZOLE SODIUM
     Indication: Short-bowel syndrome
     Dosage: 40 MILLIGRAM, QD
  42. LEVOTHYROXINE SODIUM [Concomitant]
     Active Substance: LEVOTHYROXINE SODIUM
     Indication: Hypothyroidism
     Dosage: 100 MILLIGRAM, QD
  43. FOLIC ACID [Concomitant]
     Active Substance: FOLIC ACID
     Indication: Short-bowel syndrome
     Dosage: 5 MILLIGRAM, QD

REACTIONS (3)
  - Ovarian cyst [Recovered/Resolved]
  - Small intestinal obstruction [Recovered/Resolved]
  - Weight decreased [Unknown]

NARRATIVE: CASE EVENT DATE: 20210601
